FAERS Safety Report 16397302 (Version 4)
Quarter: 2019Q3

REPORT INFORMATION
  Report Type: Spontaneous
  Country: CN (occurrence: CN)
  Receive Date: 20190606
  Receipt Date: 20190726
  Transmission Date: 20191004
  Serious: Yes (Other)
  Sender: FDA-Public Use
  Company Number: CN-TERSERA THERAPEUTICS LLC-2019TRS000886

PATIENT

DRUGS (2)
  1. ZOLADEX [Suspect]
     Active Substance: GOSERELIN ACETATE
     Indication: METASTASIS
     Dosage: 3.6 MILLIGRAM, MONTHLY (28 DAYS)
     Route: 058
     Dates: start: 2019
  2. CASODEX [Suspect]
     Active Substance: BICALUTAMIDE
     Indication: METASTASIS
     Dosage: 50 MILLIGRAM, QD
     Route: 048
     Dates: start: 2019

REACTIONS (1)
  - Interstitial lung disease [Unknown]

NARRATIVE: CASE EVENT DATE: 20190529
